FAERS Safety Report 5878701-8 (Version None)
Quarter: 2008Q3

REPORT INFORMATION
  Report Type: 
  Country: None (occurrence: None)
  Receive Date: 20080910
  Receipt Date: 20080910
  Transmission Date: 20090109
  Serious: Yes (Hospitalization, Other)
  Sender: FDA-Public Use
  Company Number: None

PATIENT
  Age: 54 Year
  Sex: Female
  Weight: 76.2043 kg

DRUGS (1)
  1. ALBUTEROL [Suspect]
     Indication: PNEUMONIA
     Dosage: 1 TREATMENT INHAL
     Route: 055

REACTIONS (11)
  - ATRIAL FIBRILLATION [None]
  - CHILLS [None]
  - CONVULSION [None]
  - COORDINATION ABNORMAL [None]
  - DIZZINESS [None]
  - DRUG INEFFECTIVE [None]
  - FATIGUE [None]
  - MOVEMENT DISORDER [None]
  - NAUSEA [None]
  - SLEEP DISORDER [None]
  - VOMITING [None]
